FAERS Safety Report 21771068 (Version 3)
Quarter: 2023Q1

REPORT INFORMATION
  Report Type: Spontaneous
  Country: US (occurrence: US)
  Receive Date: 20221223
  Receipt Date: 20230127
  Transmission Date: 20230417
  Serious: No
  Sender: FDA-Public Use
  Company Number: US-UNITED THERAPEUTICS-UNT-2022-028625

PATIENT
  Sex: Female
  Weight: 68.571 kg

DRUGS (7)
  1. REMODULIN [Suspect]
     Active Substance: TREPROSTINIL
     Indication: Pulmonary arterial hypertension
     Dosage: 0.004 ?G/KG, CONTINUING (SELF-FILLED WITH 1.7 ML/CASSETTE; PUMP RATE 16 MCL/HOUR)
     Route: 058
     Dates: start: 20221117
  2. REMODULIN [Suspect]
     Active Substance: TREPROSTINIL
     Dosage: 0.012 ?G/KG (SELF-FILL CASSETTE WITH 3 ML AT A PUMP RATE OF 49 MCL PER HOUR), CONTINUING
     Route: 058
     Dates: start: 2022
  3. REMODULIN [Suspect]
     Active Substance: TREPROSTINIL
     Dosage: 0.008 ?G/KG (SELF-FILL CASSETTE WITH 2.8 ML AT A RATE OF 32 MCL PER HOUR), CONTINUING
     Route: 058
     Dates: start: 2022
  4. REMODULIN [Suspect]
     Active Substance: TREPROSTINIL
     Dosage: 0.014 ?G/KG, CONTINUING (SELF-FILL WITH 3 ML PER CASSETTE AT A PUMP RATE OF 57 MCL PER HOUR)
     Route: 058
     Dates: start: 2022
  5. REMODULIN [Suspect]
     Active Substance: TREPROSTINIL
     Indication: Pulmonary arterial hypertension
     Dosage: 0.014 ?G/KG, CONTINUING (SELF-FILL CASSETTE WITH 2.2 ML, AT A PUMP RATE OF 23 MCL PER HOUR)
     Route: 058
  6. REMODULIN [Suspect]
     Active Substance: TREPROSTINIL
     Dosage: UNK UNK, CONTINUING
     Route: 058
  7. SILDENAFIL [Concomitant]
     Active Substance: SILDENAFIL
     Indication: Product used for unknown indication
     Route: 065

REACTIONS (7)
  - Infusion site pain [Recovered/Resolved]
  - Diarrhoea [Unknown]
  - Infusion site erythema [Unknown]
  - Skin discolouration [Recovering/Resolving]
  - Infusion site pruritus [Unknown]
  - Headache [Unknown]
  - Device wireless communication issue [Unknown]

NARRATIVE: CASE EVENT DATE: 20220101
